FAERS Safety Report 20050069 (Version 1)
Quarter: 2021Q4

REPORT INFORMATION
  Report Type: Spontaneous
  Country: US (occurrence: None)
  Receive Date: 20211109
  Receipt Date: 20211109
  Transmission Date: 20220303
  Serious: Yes (Other)
  Sender: FDA-Public Use
  Company Number: None

PATIENT
  Age: 16 Year
  Sex: Male
  Weight: 77.85 kg

DRUGS (3)
  1. RISPERIDONE [Suspect]
     Active Substance: RISPERIDONE
     Indication: Depressed mood
     Dosage: FREQUENCY : TWICE A DAY;?
     Route: 048
     Dates: start: 20211107, end: 20211107
  2. diphenhydramine 50mg IM [Concomitant]
     Dates: start: 20211106, end: 20211106
  3. haloperidol 5mg IM [Concomitant]
     Dates: start: 20211106, end: 20211106

REACTIONS (15)
  - Musculoskeletal stiffness [None]
  - Back pain [None]
  - Dyspnoea [None]
  - Extrapyramidal disorder [None]
  - Blood pressure increased [None]
  - Heart rate increased [None]
  - Oxygen saturation decreased [None]
  - Swollen tongue [None]
  - Cardio-respiratory arrest [None]
  - Dystonia [None]
  - Hypoaesthesia [None]
  - Vomiting [None]
  - Irregular breathing [None]
  - Hyperhidrosis [None]
  - Auditory disorder [None]

NARRATIVE: CASE EVENT DATE: 20211107
